FAERS Safety Report 10216336 (Version 1)
Quarter: 2014Q2

REPORT INFORMATION
  Report Type: Spontaneous
  Country: US (occurrence: None)
  Receive Date: 20140603
  Receipt Date: 20140603
  Transmission Date: 20141212
  Serious: Yes (Other)
  Sender: FDA-Public Use
  Company Number: None

PATIENT
  Age: 26 Year
  Sex: Female
  Weight: 56.7 kg

DRUGS (1)
  1. NEXIUM [Suspect]
     Indication: GASTROOESOPHAGEAL REFLUX DISEASE
     Dosage: ALMOST 2 YEARS, 1 CAPSULE, ONCE DAILY, TAKEN BY MOUTH
     Route: 048

REACTIONS (3)
  - Toothache [None]
  - Tooth demineralisation [None]
  - Fear of disease [None]
